FAERS Safety Report 16197421 (Version 5)
Quarter: 2022Q3

REPORT INFORMATION
  Report Type: Spontaneous
  Country: JP (occurrence: JP)
  Receive Date: 20190415
  Receipt Date: 20220713
  Transmission Date: 20221027
  Serious: Yes (Hospitalization, Other)
  Sender: FDA-Public Use
  Company Number: JP-GSKNCCC-A040J00000MGO5EQAG

PATIENT

DRUGS (9)
  1. LAMICTAL [Suspect]
     Active Substance: LAMOTRIGINE
     Indication: Bipolar disorder
     Dosage: 25 MG, QD
     Route: 048
     Dates: start: 20190221, end: 20190305
  2. LAMICTAL [Suspect]
     Active Substance: LAMOTRIGINE
     Indication: Depression
     Dosage: 50 MG, QD
     Route: 048
     Dates: start: 20190306, end: 20190319
  3. LAMICTAL [Suspect]
     Active Substance: LAMOTRIGINE
     Dosage: 100 MG, QD
     Route: 048
     Dates: start: 20190320, end: 20190326
  4. LAMICTAL [Suspect]
     Active Substance: LAMOTRIGINE
     Dosage: 150 MG, QD
     Route: 048
     Dates: start: 20190327, end: 20190402
  5. LAMICTAL [Suspect]
     Active Substance: LAMOTRIGINE
     Dosage: 200 MG, QD
     Route: 048
     Dates: start: 20190403, end: 20190407
  6. BELSOMRA [Concomitant]
     Active Substance: SUVOREXANT
     Indication: Insomnia
     Dosage: 15 MG, 1D
     Route: 048
     Dates: start: 20190221, end: 20190407
  7. UNSPECIFIED INGREDIENT [Concomitant]
     Active Substance: UNSPECIFIED INGREDIENT
     Indication: Constipation
     Dosage: 2.5 G, 1D
     Route: 048
     Dates: start: 20190221, end: 20190407
  8. OLANZAPINE [Concomitant]
     Active Substance: OLANZAPINE
     Indication: Depression
     Dosage: 2.5 MG, 1D
     Route: 048
     Dates: start: 20190301, end: 20190407
  9. UNSPECIFIED INGREDIENT [Concomitant]
     Active Substance: UNSPECIFIED INGREDIENT
     Indication: Palpitations
     Dosage: 2.5 G, 1D
     Route: 048
     Dates: start: 20190221, end: 20190407

REACTIONS (6)
  - Drug reaction with eosinophilia and systemic symptoms [Unknown]
  - Erythema [Unknown]
  - Dermatitis exfoliative generalised [Unknown]
  - Lip erosion [Unknown]
  - Oral mucosa erosion [Unknown]
  - Rash maculo-papular [Unknown]

NARRATIVE: CASE EVENT DATE: 20190407
